FAERS Safety Report 7326087-4 (Version None)
Quarter: 2011Q1

REPORT INFORMATION
  Report Type: 
  Country: None (occurrence: None)
  Receive Date: 20110302
  Receipt Date: 20110223
  Transmission Date: 20110831
  Serious: Yes (Other)
  Sender: FDA-Public Use
  Company Number: ZA-ROCHE-756341

PATIENT
  Sex: Male
  Weight: 84.6 kg

DRUGS (1)
  1. CELLCEPT [Suspect]
     Indication: RENAL TRANSPLANT
     Dosage: FREQUENCY: BD
     Route: 065
     Dates: start: 20101101

REACTIONS (1)
  - THROMBOTIC THROMBOCYTOPENIC PURPURA [None]
